FAERS Safety Report 15757243 (Version 3)
Quarter: 2019Q1

REPORT INFORMATION
  Report Type: Spontaneous
  Country: ES (occurrence: ES)
  Receive Date: 20181224
  Receipt Date: 20190306
  Transmission Date: 20190417
  Serious: Yes (Hospitalization, Other)
  Sender: FDA-Public Use
  Company Number: ES-PFIZER INC-2018299098

PATIENT
  Age: 70 Year

DRUGS (1)
  1. ATORVASTATIN CALCIUM. [Suspect]
     Active Substance: ATORVASTATIN CALCIUM
     Indication: MYOCARDIAL ISCHAEMIA
     Dosage: 40 MG, UNK

REACTIONS (4)
  - Immune-mediated necrotising myopathy [Recovered/Resolved]
  - Muscular weakness [Unknown]
  - Dysphagia [Unknown]
  - Weight decreased [Unknown]
